FAERS Safety Report 5557916-2 (Version None)
Quarter: 2007Q4

REPORT INFORMATION
  Report Type: 
  Country: None (occurrence: None)
  Receive Date: 20071214
  Receipt Date: 20071207
  Transmission Date: 20080405
  Serious: Yes (Disabling)
  Sender: FDA-Public Use
  Company Number: NL-ASTRAZENECA-2007AC01290

PATIENT
  Age: 45 Year
  Sex: Male
  Weight: 98 kg

DRUGS (5)
  1. SEROQUEL [Suspect]
     Indication: BIPOLAR I DISORDER
     Dosage: DOSE TAPERED THEN STOPPED
     Route: 048
     Dates: start: 20060307, end: 20070923
  2. SEROQUEL [Suspect]
     Indication: MANIA
     Dosage: DOSE TAPERED THEN STOPPED
     Route: 048
     Dates: start: 20060307, end: 20070923
  3. LITHIUM CARBONATE [Concomitant]
     Indication: BIPOLAR I DISORDER
  4. VALPROATE SODIUM [Concomitant]
     Indication: BIPOLAR I DISORDER
  5. BROMAZEPAM [Concomitant]
     Indication: BIPOLAR I DISORDER

REACTIONS (1)
  - SLEEP APNOEA SYNDROME [None]
